FAERS Safety Report 6915146-3 (Version None)
Quarter: 2010Q3

REPORT INFORMATION
  Report Type: 
  Country: None (occurrence: None)
  Receive Date: 20100809
  Receipt Date: 20100729
  Transmission Date: 20110219
  Serious: Yes (Hospitalization, Other)
  Sender: FDA-Public Use
  Company Number: US-BAXTER-2010BH018335

PATIENT
  Age: 42 Year
  Sex: Male

DRUGS (1)
  1. SODIUM CHLORIDE 0.9% IN PLASTIC CONTAINER [Suspect]
     Indication: WOUND TREATMENT
     Route: 050
     Dates: start: 20100614, end: 20100614

REACTIONS (1)
  - BACTERIAL INFECTION [None]
